FAERS Safety Report 12872781 (Version 3)
Quarter: 2018Q4

REPORT INFORMATION
  Report Type: Spontaneous
  Country: US (occurrence: US)
  Receive Date: 20161021
  Receipt Date: 20181023
  Transmission Date: 20190204
  Serious: Yes (Other)
  Sender: FDA-Public Use
  Company Number: US-PFIZER INC-2016487768

PATIENT
  Age: 38 Year
  Sex: Male

DRUGS (3)
  1. DOXORUBICIN HCL [Suspect]
     Active Substance: DOXORUBICIN HYDROCHLORIDE
     Indication: MYXOFIBROSARCOMA
     Dosage: UNK UNK, CYCLIC
  2. IFOSFAMIDE. [Suspect]
     Active Substance: IFOSFAMIDE
     Indication: MYXOFIBROSARCOMA
     Dosage: UNK UNK, CYCLIC
  3. MESNA. [Suspect]
     Active Substance: MESNA
     Indication: MYXOFIBROSARCOMA
     Dosage: UNK UNK, CYCLIC

REACTIONS (4)
  - Febrile neutropenia [Unknown]
  - Pericardial effusion [Unknown]
  - Pleural effusion [Unknown]
  - Pancytopenia [Unknown]
